FAERS Safety Report 17324032 (Version 1)
Quarter: 2020Q1

REPORT INFORMATION
  Report Type: Spontaneous
  Country: US (occurrence: US)
  Receive Date: 20200109
  Receipt Date: 20200109
  Transmission Date: 20200409
  Serious: No
  Sender: FDA-Public Use
  Company Number: None

PATIENT
  Age: 40 Year
  Sex: Female

DRUGS (1)
  1. AUSTEDO [Suspect]
     Active Substance: DEUTETRABENAZINE
     Indication: BIPOLAR DISORDER
     Route: 048
     Dates: start: 20191020

REACTIONS (1)
  - Off label use [None]

NARRATIVE: CASE EVENT DATE: 20200109
